FAERS Safety Report 15955461 (Version 1)
Quarter: 2019Q1

REPORT INFORMATION
  Report Type: Spontaneous
  Country: US (occurrence: US)
  Receive Date: 20190213
  Receipt Date: 20190213
  Transmission Date: 20190417
  Serious: Yes (Other)
  Sender: FDA-Public Use
  Company Number: US-ELI_LILLY_AND_COMPANY-US201902001531

PATIENT
  Age: 57 Year
  Sex: Male

DRUGS (3)
  1. TRULICITY [Suspect]
     Active Substance: DULAGLUTIDE
     Indication: TYPE 2 DIABETES MELLITUS
     Dosage: 1.5 MG, UNKNOWN
     Route: 058
     Dates: end: 201812
  2. HUMALOG [Suspect]
     Active Substance: INSULIN LISPRO
     Indication: TYPE 2 DIABETES MELLITUS
     Dosage: 8 U, UNKNOWN (BEFORE EACH MEAL)
     Route: 058
     Dates: start: 20190126
  3. TRULICITY [Suspect]
     Active Substance: DULAGLUTIDE
     Indication: TYPE 2 DIABETES MELLITUS
     Dosage: 0.75 MG, UNKNOWN
     Route: 058
     Dates: start: 201701

REACTIONS (6)
  - Dizziness [Recovered/Resolved]
  - Drug ineffective [Not Recovered/Not Resolved]
  - Weight decreased [Unknown]
  - Morning sickness [Recovered/Resolved]
  - Blood glucose increased [Recovered/Resolved]
  - Blood glucose increased [Unknown]
